FAERS Safety Report 11704582 (Version 1)
Quarter: 2015Q4

REPORT INFORMATION
  Report Type: Spontaneous
  Country: US (occurrence: US)
  Receive Date: 20151106
  Receipt Date: 20151106
  Transmission Date: 20160304
  Serious: No
  Sender: FDA-Public Use
  Company Number: US-BAYER-2015-462196

PATIENT
  Age: 49 Year
  Sex: Male
  Weight: 45.35 kg

DRUGS (2)
  1. GLUCOSAMINE [Concomitant]
     Active Substance: GLUCOSAMINE
     Dosage: UNK
  2. ALEVE [Suspect]
     Active Substance: NAPROXEN SODIUM
     Indication: ARTHRALGIA
     Dosage: 1 DF, BID
     Route: 048
     Dates: start: 2014

REACTIONS (1)
  - Product use issue [None]
